FAERS Safety Report 14038426 (Version 3)
Quarter: 2017Q4

REPORT INFORMATION
  Report Type: Spontaneous
  Country: FI (occurrence: FI)
  Receive Date: 20171004
  Receipt Date: 20171208
  Transmission Date: 20180321
  Serious: Yes (Other)
  Sender: FDA-Public Use
  Company Number: FI-TEVA-810181ISR

PATIENT
  Age: 62 Year
  Sex: Female

DRUGS (1)
  1. LETROZOL RATIOPHARM 2,5MG [Suspect]
     Active Substance: LETROZOLE

REACTIONS (5)
  - Incorrect drug administration duration [Unknown]
  - Myalgia [Not Recovered/Not Resolved]
  - Memory impairment [Not Recovered/Not Resolved]
  - Venous occlusion [Not Recovered/Not Resolved]
  - Arthralgia [Not Recovered/Not Resolved]

NARRATIVE: CASE EVENT DATE: 20170914
